FAERS Safety Report 4280054-6 (Version None)
Quarter: 2004Q1

REPORT INFORMATION
  Report Type: 
  Country: None (occurrence: None)
  Receive Date: 20040126
  Receipt Date: 20040113
  Transmission Date: 20041129
  Serious: Yes (Death, Other)
  Sender: FDA-Public Use
  Company Number: 2004001768

PATIENT
  Age: 12 Year
  Sex: Male

DRUGS (1)
  1. VORICONAZOLE [Suspect]
     Indication: FUNGAL INFECTION

REACTIONS (1)
  - DEATH [None]
